FAERS Safety Report 15201618 (Version 1)
Quarter: 2018Q4

REPORT INFORMATION
  Report Type: Spontaneous
  Country: ES (occurrence: ES)
  Receive Date: 20180726
  Receipt Date: 20180726
  Transmission Date: 20190204
  Serious: Yes (Other)
  Sender: FDA-Public Use
  Company Number: ES-TEVA-2018-ES-930516

PATIENT
  Age: 91 Year
  Sex: Male

DRUGS (7)
  1. NITROFIX (ISOSORBIDE MONONITRATE) [Concomitant]
     Active Substance: ISOSORBIDE MONONITRATE
     Dosage: 10 MILLIGRAM DAILY; 30 PATCHES
     Route: 062
  2. TROMALYT 150, CAPSULAS DURAS DE LIBERACION PROLONGADA , 28 C?PSULAS [Concomitant]
     Dosage: 150 MILLIGRAM DAILY; 28 CAPSULES
     Route: 048
  3. TAMSULOSINA CINFA 0,4 MG CAPSULAS DURAS DE LIBERACION MODIFICADA EFG , [Concomitant]
     Dosage: .4 MILLIGRAM DAILY; 30 CAPSULES
     Route: 048
  4. VORICONAZOL TEVA 200 MG COMPRIMIDOS RECUBIERTOS CON PELICULA EFG , 28 [Suspect]
     Active Substance: VORICONAZOLE
     Indication: FUNGAL TEST POSITIVE
     Dosage: 28 TABLETS
     Route: 048
     Dates: start: 20180511, end: 20180524
  5. OMEPRAZOL CINFAMED 20 MG CAPSULAS DURAS GASTRORESISTENTES EFG , 28 C?P [Concomitant]
     Dosage: 20 MILLIGRAM DAILY; 28 CAPSULES
     Route: 048
  6. IBUPROFENO CINFA 600 MG COMPRIMIDOS RECUBIERTOS CON PELICULA EFG , 40 [Concomitant]
     Dosage: 40 TABLETS
     Route: 048
  7. BISOPROLOL NORMON 2,5 MG COMPRIMIDOS RECUBIERTOS CON PELICULA EFG , 28 [Concomitant]
     Active Substance: BISOPROLOL
     Dosage: 2.5 MILLIGRAM DAILY; 28 TABLETS
     Route: 048

REACTIONS (5)
  - Vision blurred [Recovering/Resolving]
  - Hallucination, visual [Recovered/Resolved]
  - Balance disorder [Recovering/Resolving]
  - Sleep disorder [Recovering/Resolving]
  - Delirium [Recovered/Resolved]

NARRATIVE: CASE EVENT DATE: 201805
